FAERS Safety Report 9461364 (Version 1)
Quarter: 2013Q3

REPORT INFORMATION
  Report Type: Spontaneous
  Country: US (occurrence: None)
  Receive Date: 20130814
  Receipt Date: 20130814
  Transmission Date: 20140515
  Serious: No
  Sender: FDA-Public Use
  Company Number: None

PATIENT
  Age: 51 Year
  Sex: Female
  Weight: 77.11 kg

DRUGS (1)
  1. CLINDAMYCIN HCL [Suspect]
     Indication: GINGIVAL DISORDER
     Dosage: 300 MG CAPSULE ONE EVERY 6 HRS TAKEN BY MOUTH
     Route: 048
     Dates: start: 20121025, end: 20121101

REACTIONS (2)
  - Oral candidiasis [None]
  - Dysgeusia [None]
